FAERS Safety Report 4621275-X (Version None)
Quarter: 2005Q1

REPORT INFORMATION
  Report Type: 
  Country: None (occurrence: None)
  Receive Date: 20050329
  Receipt Date: 20050321
  Transmission Date: 20050727
  Serious: Yes (Death, Hospitalization)
  Sender: FDA-Public Use
  Company Number: FR-JNJFOC-20050305212

PATIENT
  Sex: Female

DRUGS (1)
  1. CAELYX [Suspect]
     Indication: BREAST CANCER
     Route: 042

REACTIONS (3)
  - BREAST CANCER [None]
  - MALIGNANT NEOPLASM PROGRESSION [None]
  - VASCULITIS [None]
